FAERS Safety Report 13327713 (Version 1)
Quarter: 2017Q1

REPORT INFORMATION
  Report Type: Spontaneous
  Country: US (occurrence: US)
  Receive Date: 20170313
  Receipt Date: 20170313
  Transmission Date: 20170428
  Serious: No
  Sender: FDA-Public Use
  Company Number: US-JNJFOC-20161210357

PATIENT
  Age: 47 Year
  Sex: Female
  Weight: 57.15 kg

DRUGS (2)
  1. WOMENS ROGAINE UNSCENTED [Suspect]
     Active Substance: MINOXIDIL
     Indication: ALOPECIA
     Dosage: 1/2 CAPFUL
     Route: 061
     Dates: start: 20161207, end: 20161208
  2. WOMENS ROGAINE UNSCENTED [Suspect]
     Active Substance: MINOXIDIL
     Indication: ALOPECIA
     Route: 061
     Dates: start: 20170117, end: 20170117

REACTIONS (6)
  - Erythema [Recovering/Resolving]
  - Intentional product use issue [Recovering/Resolving]
  - Head discomfort [Unknown]
  - Pruritus [Recovering/Resolving]
  - Intentional product misuse [Recovering/Resolving]
  - Skin irritation [Recovered/Resolved]

NARRATIVE: CASE EVENT DATE: 20161207
